FAERS Safety Report 16985264 (Version 1)
Quarter: 2019Q4

REPORT INFORMATION
  Report Type: Spontaneous
  Country: FR (occurrence: FR)
  Receive Date: 20191101
  Receipt Date: 20191101
  Transmission Date: 20200122
  Serious: Yes (Hospitalization)
  Sender: FDA-Public Use
  Company Number: FR-PFIZER INC-2019466789

PATIENT
  Age: 71 Year
  Sex: Female
  Weight: 48.9 kg

DRUGS (5)
  1. ACUILIX [Suspect]
     Active Substance: HYDROCHLOROTHIAZIDE\QUINAPRIL HYDROCHLORIDE
     Indication: HYPERTENSION
     Dosage: 1 DF, DAILY
     Route: 048
     Dates: end: 20190721
  2. METFORMINE [Concomitant]
     Active Substance: METFORMIN HYDROCHLORIDE
     Dosage: UNK
  3. FUMAFER [Concomitant]
     Active Substance: FERROUS FUMARATE
     Dosage: UNK
  4. GALVUS [Concomitant]
     Active Substance: VILDAGLIPTIN
     Dosage: UNK
  5. CHRONADALATE [Concomitant]
     Active Substance: NIFEDIPINE
     Dosage: UNK

REACTIONS (2)
  - Hypokalaemia [Recovered/Resolved]
  - Hyponatraemia [Recovered/Resolved]

NARRATIVE: CASE EVENT DATE: 20190721
